FAERS Safety Report 16972190 (Version 2)
Quarter: 2019Q4

REPORT INFORMATION
  Report Type: Report from Study
  Country: US (occurrence: US)
  Receive Date: 20191029
  Receipt Date: 20191114
  Transmission Date: 20200122
  Serious: Yes (Hospitalization)
  Sender: FDA-Public Use
  Company Number: US-ACTELION-A-NJ2016-137441

PATIENT
  Sex: Female
  Weight: 81.18 kg

DRUGS (9)
  1. VELETRI [Suspect]
     Active Substance: EPOPROSTENOL
     Dosage: 65 NG/KG, PER MIN
     Route: 042
     Dates: start: 20111202
  2. TRACLEER [Concomitant]
     Active Substance: BOSENTAN
     Indication: PULMONARY ARTERIAL HYPERTENSION
     Route: 048
  3. ADCIRCA [Concomitant]
     Active Substance: TADALAFIL
  4. ELIQUIS [Concomitant]
     Active Substance: APIXABAN
  5. VELETRI [Suspect]
     Active Substance: EPOPROSTENOL
     Indication: PULMONARY ARTERIAL HYPERTENSION
     Dosage: 57 NG/KG, PER MIN
     Route: 042
     Dates: start: 20111202
  6. OPSUMIT [Concomitant]
     Active Substance: MACITENTAN
     Route: 048
  7. WARFARIN [Concomitant]
     Active Substance: WARFARIN
  8. SILDENAFIL. [Concomitant]
     Active Substance: SILDENAFIL
  9. XARELTO [Concomitant]
     Active Substance: RIVAROXABAN

REACTIONS (7)
  - Nasopharyngitis [Unknown]
  - Diarrhoea [Unknown]
  - Pneumonia [Unknown]
  - Pain in jaw [Unknown]
  - Headache [Unknown]
  - Nausea [Unknown]
  - Weight increased [Unknown]
